FAERS Safety Report 8048378-4 (Version None)
Quarter: 2012Q1

REPORT INFORMATION
  Report Type: 
  Country: None (occurrence: None)
  Receive Date: 20120117
  Receipt Date: 20120111
  Transmission Date: 20120608
  Serious: No
  Sender: FDA-Public Use
  Company Number: US-PFIZER INC-2012008556

PATIENT
  Age: 77 Year
  Sex: Female

DRUGS (7)
  1. PROTONIX [Suspect]
     Dosage: UNK
  2. PRINIVIL [Suspect]
     Dosage: UNK
  3. XANAX [Suspect]
     Dosage: UNK
  4. BENTYL [Suspect]
     Dosage: UNK
  5. LOVAZA [Suspect]
     Dosage: UNK
  6. CARAFATE [Suspect]
     Dosage: UNK
  7. REMERON [Suspect]
     Dosage: UNK

REACTIONS (3)
  - DYSPNOEA [None]
  - COUGH [None]
  - SINUS DISORDER [None]
